FAERS Safety Report 9956544 (Version 1)
Quarter: 2014Q1

REPORT INFORMATION
  Report Type: Report from Study
  Country: US (occurrence: US)
  Receive Date: 20140304
  Receipt Date: 20140304
  Transmission Date: 20141002
  Serious: No
  Sender: FDA-Public Use
  Company Number: US-ABBVIE-13P-163-1092888-00

PATIENT
  Age: 58 Year
  Sex: Female

DRUGS (6)
  1. HUMIRA [Suspect]
     Indication: COLITIS ULCERATIVE
     Dates: start: 201212
  2. LIALDA [Concomitant]
     Indication: COLITIS ULCERATIVE
  3. CANASA [Concomitant]
     Indication: COLITIS ULCERATIVE
  4. MULTIVITAMIN [Concomitant]
     Indication: SUPPLEMENTATION THERAPY
  5. LONG, STRONG HAIR AND NAIL BIOTIN SUPPLEMENT [Concomitant]
     Indication: ALOPECIA
  6. VITAMIN D [Concomitant]
     Indication: PRODUCT USED FOR UNKNOWN INDICATION

REACTIONS (2)
  - Incorrect product storage [Recovered/Resolved]
  - Poor quality drug administered [Recovered/Resolved]
